FAERS Safety Report 20814499 (Version 1)
Quarter: 2022Q2

REPORT INFORMATION
  Report Type: Report from Study
  Country: US (occurrence: US)
  Receive Date: 20220511
  Receipt Date: 20220511
  Transmission Date: 20220721
  Serious: Yes (Other)
  Sender: FDA-Public Use
  Company Number: US-BAYER-2022A066257

PATIENT
  Age: 83 Year
  Sex: Male

DRUGS (11)
  1. STIVARGA [Suspect]
     Active Substance: REGORAFENIB
     Indication: Colorectal cancer metastatic
     Dosage: 120 MG, QD FOR 21 DAYS ON 7 DAYS OFF
     Dates: start: 202202
  2. ALTACE [Concomitant]
     Active Substance: RAMIPRIL
     Dosage: UNK
  3. COREG [Concomitant]
     Active Substance: CARVEDILOL
     Dosage: UNK
  4. DIGOXIN [Concomitant]
     Active Substance: DIGOXIN
     Dosage: UNK
  5. DULOXETINE [Concomitant]
     Active Substance: DULOXETINE
     Dosage: UNK
  6. PLAVIX [Concomitant]
     Active Substance: CLOPIDOGREL BISULFATE
     Dosage: UNK
  7. POTASSIUM CHLORIDE [Concomitant]
     Active Substance: POTASSIUM CHLORIDE
     Dosage: UNK
  8. RETINOL [Concomitant]
     Active Substance: RETINOL
     Dosage: UNK
  9. ASCORBIC ACID [Concomitant]
     Active Substance: ASCORBIC ACID
     Dosage: UNK
  10. VITAMIN D NOS [Concomitant]
     Active Substance: VITAMIN D NOS
     Dosage: UNK
  11. XARELTO [Concomitant]
     Active Substance: RIVAROXABAN
     Dosage: UNK

REACTIONS (4)
  - Neuralgia [Not Recovered/Not Resolved]
  - Rash [Recovered/Resolved]
  - Hypocalcaemia [Not Recovered/Not Resolved]
  - Pain in extremity [None]
